FAERS Safety Report 17670992 (Version 2)
Quarter: 2020Q2

REPORT INFORMATION
  Report Type: Report from Study
  Country: US (occurrence: US)
  Receive Date: 20200415
  Receipt Date: 20200417
  Transmission Date: 20200713
  Serious: Yes (Other)
  Sender: FDA-Public Use
  Company Number: US-PFIZER INC-2020152470

PATIENT
  Sex: Male

DRUGS (4)
  1. TETRACAINE. [Suspect]
     Active Substance: TETRACAINE
     Indication: LOCAL ANAESTHESIA
     Dosage: 0.125 MG/KG, UNK (4 ML. CONTAINED 0.125 MG. PER KILOGRAM OF BODY WEIGHT OF TETRACAINE)
     Route: 042
  2. CHLOROPROCAINE HYDROCHLORIDE. [Suspect]
     Active Substance: CHLOROPROCAINE HYDROCHLORIDE
     Indication: LOCAL ANAESTHESIA
     Dosage: UNK (ADMINISTERED AT ONE AND ONE-HALF TIMES THE CORRESPONDING RATE, THE MILLIGRAM PER KILOGRAM OF BO
     Route: 042
  3. LIDOCAINE HCL [Suspect]
     Active Substance: LIDOCAINE HYDROCHLORIDE
     Indication: LOCAL ANAESTHESIA
     Dosage: 0.5 MG, UNK (4 ML. CONTAINED 0.5 MG. OF LIDOCAINE, BY MEANS OF A HARVARD 600-900 VARIABLE SPEED INFU
     Route: 042
  4. PROCAINE [Suspect]
     Active Substance: PROCAINE
     Indication: LOCAL ANAESTHESIA
     Dosage: 1.0 MG, UNK (4 ML. CONTAINED 1.0 MG. OF PROCAINE)
     Route: 042

REACTIONS (3)
  - Muscle twitching [Unknown]
  - Seizure [Unknown]
  - Muscle contractions involuntary [Unknown]
